FAERS Safety Report 21730381 (Version 1)
Quarter: 2022Q4

REPORT INFORMATION
  Report Type: Report from Study
  Country: DE (occurrence: DE)
  Receive Date: 20221214
  Receipt Date: 20221214
  Transmission Date: 20230112
  Serious: Yes (Hospitalization)
  Sender: FDA-Public Use
  Company Number: DE-ABBVIE-4235501

PATIENT
  Age: 59 Year
  Weight: 100 kg

DRUGS (6)
  1. SKYRIZI [Suspect]
     Active Substance: RISANKIZUMAB-RZAA
     Indication: Psoriasis
     Route: 058
     Dates: start: 20220524
  2. Candesartan/Amlodipin [Concomitant]
     Indication: Product used for unknown indication
     Dosage: 16 MG/10 MG
     Dates: start: 20210615
  3. AMPICILLIN SODIUM\SULBACTAM SODIUM [Concomitant]
     Active Substance: AMPICILLIN SODIUM\SULBACTAM SODIUM
     Indication: Diverticulitis
  4. MESALAMINE [Concomitant]
     Active Substance: MESALAMINE
     Indication: Diverticulitis
     Dosage: TIME INTERVAL: 0.16666667 DAYS
     Route: 048
     Dates: start: 20221122
  5. METAMIZOL [Concomitant]
     Active Substance: METAMIZOLE SODIUM
     Indication: Diverticulitis
     Route: 048
  6. AMOXICILLIN\CLAVULANIC ACID [Concomitant]
     Active Substance: AMOXICILLIN\CLAVULANIC ACID
     Indication: Diverticulitis
     Dosage: 875/125 MG
     Route: 048
     Dates: start: 20221115

REACTIONS (3)
  - Abdominal pain [Recovering/Resolving]
  - Diverticulitis [Recovered/Resolved]
  - Abdominal pain upper [Unknown]

NARRATIVE: CASE EVENT DATE: 20221101
